FAERS Safety Report 5125995-2 (Version None)
Quarter: 2006Q4

REPORT INFORMATION
  Report Type: 
  Country: None (occurrence: None)
  Receive Date: 20061012
  Receipt Date: 20060609
  Transmission Date: 20070319
  Serious: Yes (Other)
  Sender: FDA-Public Use
  Company Number: PHEH2006US07647

PATIENT
  Age: 72 Year
  Sex: Male

DRUGS (5)
  1. ZOMETA [Suspect]
     Indication: MULTIPLE MYELOMA
     Dosage: 4 MG, Q 4WK
     Dates: start: 20030201
  2. NIFEDIPINE [Concomitant]
     Indication: HYPERTENSION
  3. TRIAMTERENE [Concomitant]
     Indication: HYPERTENSION
  4. SYNTHROID [Concomitant]
     Indication: HYPOTHYROIDISM
  5. MELPHALAN [Concomitant]
     Indication: MULTIPLE MYELOMA
     Dates: start: 19970101, end: 19970101

REACTIONS (4)
  - BONE SCAN ABNORMAL [None]
  - OSTEONECROSIS [None]
  - PAIN [None]
  - TOOTHACHE [None]
